FAERS Safety Report 7224111-0 (Version None)
Quarter: 2011Q1

REPORT INFORMATION
  Report Type: 
  Country: None (occurrence: None)
  Receive Date: 20110106
  Receipt Date: 20110106
  Transmission Date: 20110831
  Serious: Yes (Hospitalization)
  Sender: FDA-Public Use
  Company Number: None

PATIENT
  Age: 68 Year
  Sex: Female
  Weight: 77 kg

DRUGS (8)
  1. ALPRAZOLAM [Concomitant]
  2. ACTOS [Concomitant]
  3. HYDROCHLOROTHIAZIDE [Concomitant]
  4. CARVEDILOL [Concomitant]
  5. TRIAMTERENE [Concomitant]
  6. ASPIRIN [Suspect]
     Indication: ATRIAL FIBRILLATION
     Dosage: 81MG DAILY PO  CHRONIC
     Route: 048
  7. SOTALOL [Concomitant]
  8. COUMADIN [Suspect]
     Indication: ATRIAL FIBRILLATION
     Dosage: 5MG/7.5MG MWF/SST TH PO CHRONIC
     Route: 048

REACTIONS (3)
  - COLONIC POLYP [None]
  - HAEMATOCRIT DECREASED [None]
  - GASTROINTESTINAL ARTERIOVENOUS MALFORMATION [None]
